FAERS Safety Report 7767258-2 (Version None)
Quarter: 2011Q3

REPORT INFORMATION
  Report Type: 
  Country: None (occurrence: None)
  Receive Date: 20110922
  Receipt Date: 20110330
  Transmission Date: 20111222
  Serious: No
  Sender: FDA-Public Use
  Company Number: US-ASTRAZENECA-2011SE01529

PATIENT
  Age: 49 Year
  Sex: Male

DRUGS (5)
  1. LITHIUM CARBONATE [Concomitant]
  2. SEROQUEL XR [Suspect]
     Indication: DEPRESSION
     Route: 048
     Dates: start: 20101209
  3. XANAX [Concomitant]
     Indication: ANXIETY
  4. SEROQUEL XR [Suspect]
     Indication: ANXIETY
     Route: 048
     Dates: start: 20101209
  5. PRIMIDONE [Concomitant]

REACTIONS (3)
  - SEBORRHOEA [None]
  - MANIA [None]
  - DRUG DOSE OMISSION [None]
